FAERS Safety Report 23544429 (Version 1)
Quarter: 2024Q1

REPORT INFORMATION
  Report Type: Spontaneous
  Country: JP (occurrence: JP)
  Receive Date: 20240220
  Receipt Date: 20240220
  Transmission Date: 20240410
  Serious: Yes (Other)
  Sender: FDA-Public Use
  Company Number: JP-SAKK-01940081

PATIENT

DRUGS (2)
  1. ALLEGRA [Suspect]
     Active Substance: FEXOFENADINE HYDROCHLORIDE
     Indication: Product used for unknown indication
     Dosage: UNK
     Route: 048
     Dates: start: 2023
  2. TACROLIMUS [Concomitant]
     Active Substance: TACROLIMUS
     Indication: Myasthenia gravis
     Dosage: UNK
     Route: 048

REACTIONS (1)
  - Myasthenia gravis [Unknown]
